FAERS Safety Report 15794275 (Version 1)
Quarter: 2019Q1

REPORT INFORMATION
  Report Type: Spontaneous
  Country: US (occurrence: US)
  Receive Date: 20190106
  Receipt Date: 20190106
  Transmission Date: 20190417
  Serious: No
  Sender: FDA-Public Use
  Company Number: None

PATIENT
  Age: 31 Year
  Sex: Female
  Weight: 108 kg

DRUGS (6)
  1. JANUVIA [Suspect]
     Active Substance: SITAGLIPTIN PHOSPHATE
     Indication: DIABETES MELLITUS
     Dosage: ?          QUANTITY:1 TABLET(S);?
     Route: 048
     Dates: start: 20181228, end: 20190106
  2. GLIPIZIDE. [Concomitant]
     Active Substance: GLIPIZIDE
  3. JANUVIA [Concomitant]
     Active Substance: SITAGLIPTIN PHOSPHATE
  4. METFORMIN [Concomitant]
     Active Substance: METFORMIN HYDROCHLORIDE
  5. LISINOPRIL. [Concomitant]
     Active Substance: LISINOPRIL
  6. BUPROPION. [Concomitant]
     Active Substance: BUPROPION

REACTIONS (12)
  - Arthralgia [None]
  - Pruritus [None]
  - Anxiety [None]
  - Headache [None]
  - Sneezing [None]
  - Myalgia [None]
  - Nausea [None]
  - Hunger [None]
  - Ear congestion [None]
  - Respiratory disorder [None]
  - Rash [None]
  - Muscle spasms [None]

NARRATIVE: CASE EVENT DATE: 20190106
